FAERS Safety Report 24205882 (Version 1)
Quarter: 2024Q3

REPORT INFORMATION
  Report Type: Spontaneous
  Country: CN (occurrence: CN)
  Receive Date: 20240813
  Receipt Date: 20240813
  Transmission Date: 20241017
  Serious: Yes (Hospitalization, Other)
  Sender: BAXTER
  Company Number: None

PATIENT
  Age: 8 Year
  Sex: Male
  Weight: 43 kg

DRUGS (11)
  1. CYCLOPHOSPHAMIDE [Suspect]
     Active Substance: CYCLOPHOSPHAMIDE
     Indication: Medulloblastoma
     Dosage: 900 MG, ONE TIME IN ONE DAY DILUTED WITH 500 ML NORMAL SALINE, THIRD CYCLE OF CHEMOTHERAPY
     Route: 041
     Dates: start: 20240719, end: 20240720
  2. CYCLOPHOSPHAMIDE [Suspect]
     Active Substance: CYCLOPHOSPHAMIDE
     Indication: Chemotherapy
  3. SODIUM CHLORIDE [Suspect]
     Active Substance: SODIUM CHLORIDE
     Indication: Medication dilution
     Dosage: 500 ML, ONE TIME IN ONE DAY USED TO DILUTE CYCLOPHOSPHAMIDE 900 MG
     Route: 041
     Dates: start: 20240719, end: 20240720
  4. SODIUM CHLORIDE [Suspect]
     Active Substance: SODIUM CHLORIDE
     Dosage: 20 ML, ONE TIME IN ONE DAY USED TO DILUTE VINDESINE SULFATE 3.5 MG
     Route: 042
     Dates: start: 20240719, end: 20240719
  5. SODIUM CHLORIDE [Suspect]
     Active Substance: SODIUM CHLORIDE
     Dosage: 20 ML, ONE TIME IN ONE DAY USED TO DILUTE VINDESINE SULFATE 3.5 MG
     Route: 042
     Dates: start: 20240726, end: 20240726
  6. SODIUM CHLORIDE [Suspect]
     Active Substance: SODIUM CHLORIDE
     Dosage: 500 ML, ONE TIME IN ONE DAY USED TO DILUTE CISPLATIN 50 MG
     Route: 041
     Dates: start: 20240719, end: 20240720
  7. VINDESINE SULFATE [Suspect]
     Active Substance: VINDESINE SULFATE
     Indication: Medulloblastoma
     Dosage: 3.5 MG, ONE TIME IN ONE DAY (PUSH) DILUTED WITH 20 ML NORMAL SALINE, THIRD CYCLE OF CHEMOTHERAPY
     Route: 042
     Dates: start: 20240719, end: 20240719
  8. VINDESINE SULFATE [Suspect]
     Active Substance: VINDESINE SULFATE
     Indication: Chemotherapy
     Dosage: 3.5 MG, ONE TIME IN ONE DAY (PUSH) DILUTED WITH 20 ML NORMAL SALINE, THIRD CYCLE OF CHEMOTHERAPY
     Route: 042
     Dates: start: 20240726, end: 20240726
  9. CISPLATIN [Suspect]
     Active Substance: CISPLATIN
     Indication: Medulloblastoma
     Dosage: 50 MG, ONE TIME IN ONE DAY DILUTED WITH 500 ML NORMAL SALINE, THIRD CYCLE OF CHEMOTHERAPY
     Route: 041
     Dates: start: 20240719, end: 20240720
  10. CISPLATIN [Suspect]
     Active Substance: CISPLATIN
     Indication: Chemotherapy
  11. GRANULOCYTE COLONY-STIMULATING FACTOR NOS [Suspect]
     Active Substance: GRANULOCYTE COLONY-STIMULATING FACTOR NOS
     Indication: Myelosuppression
     Dosage: 150 ?G
     Route: 058
     Dates: start: 20240724

REACTIONS (3)
  - Myelosuppression [Recovering/Resolving]
  - White blood cell count decreased [Recovering/Resolving]
  - Pyrexia [Unknown]

NARRATIVE: CASE EVENT DATE: 20240726
